FAERS Safety Report 4777485-4 (Version None)
Quarter: 2005Q3

REPORT INFORMATION
  Report Type: 
  Country: None (occurrence: None)
  Receive Date: 20050915
  Receipt Date: 20050830
  Transmission Date: 20060218
  Serious: Yes (Other)
  Sender: FDA-Public Use
  Company Number: USA0506101203

PATIENT
  Age: 78 Year
  Sex: Female

DRUGS (8)
  1. FORTEO [Suspect]
     Indication: OSTEOPOROSIS
     Dates: start: 20040201
  2. ZYPREXA [Suspect]
     Indication: DEPRESSION
     Dosage: 5 MG
     Dates: start: 20040408
  3. BISOPROLOL W/HYDROCHLOROTHIAZIDE [Concomitant]
  4. XANAX [Concomitant]
  5. SYNTHROID [Concomitant]
  6. CARDIZEM LA (DILTIAZEM   00489701/) [Concomitant]
  7. VASOTEC [Concomitant]
  8. ULTRAM [Concomitant]

REACTIONS (7)
  - BALANCE DISORDER [None]
  - BLOOD SODIUM DECREASED [None]
  - DIZZINESS [None]
  - FALL [None]
  - LIVING IN RESIDENTIAL INSTITUTION [None]
  - PHARMACEUTICAL PRODUCT COMPLAINT [None]
  - THERAPY NON-RESPONDER [None]
